FAERS Safety Report 9716181 (Version 1)
Quarter: 2013Q4

REPORT INFORMATION
  Report Type: Spontaneous
  Country: US (occurrence: None)
  Receive Date: 20131126
  Receipt Date: 20131126
  Transmission Date: 20140711
  Serious: Yes (Death)
  Sender: FDA-Public Use
  Company Number: None

PATIENT
  Age: 75 Year
  Sex: Male

DRUGS (2)
  1. PREDNISONE [Suspect]
     Indication: PROSTATE CANCER
     Dosage: 1 TAB
     Route: 048
     Dates: start: 20130626, end: 20131110
  2. ZYTIGA [Suspect]
     Dosage: 4 TABS
     Route: 048
     Dates: start: 20130626, end: 20131110

REACTIONS (1)
  - Death [None]
